FAERS Safety Report 21397623 (Version 1)
Quarter: 2022Q3

REPORT INFORMATION
  Report Type: Spontaneous
  Country: CA (occurrence: CA)
  Receive Date: 20220930
  Receipt Date: 20220930
  Transmission Date: 20221027
  Serious: Yes (Disabling)
  Sender: FDA-Public Use
  Company Number: CA-FERRINGPH-2022FE05115

PATIENT

DRUGS (2)
  1. FIRMAGON [Suspect]
     Active Substance: DEGARELIX ACETATE
     Indication: Prostate cancer
     Route: 058
  2. PROPRANOLOL [Concomitant]
     Active Substance: PROPRANOLOL HYDROCHLORIDE
     Indication: Product used for unknown indication
     Dosage: UNK, 1 TABLET EVERY MORNING
     Route: 048

REACTIONS (14)
  - Gait disturbance [Unknown]
  - Asthenia [Unknown]
  - Penis disorder [Unknown]
  - Blood testosterone abnormal [Unknown]
  - Posture abnormal [Unknown]
  - Prostatic specific antigen abnormal [Unknown]
  - Body height decreased [Unknown]
  - Bone pain [Unknown]
  - Headache [Unknown]
  - Pollakiuria [Unknown]
  - Disturbance in sexual arousal [Unknown]
  - Testicular atrophy [Unknown]
  - Weight increased [Unknown]
  - Product administered at inappropriate site [Unknown]

NARRATIVE: CASE EVENT DATE: 20220101
